FAERS Safety Report 6156304-8 (Version None)
Quarter: 2009Q2

REPORT INFORMATION
  Report Type: 
  Country: None (occurrence: None)
  Receive Date: 20090413
  Receipt Date: 20090331
  Transmission Date: 20091009
  Serious: Yes (Other)
  Sender: FDA-Public Use
  Company Number: 2009-194218-NL

PATIENT
  Age: 32 Year
  Sex: Female
  Weight: 74.8 kg

DRUGS (1)
  1. IMPLANON [Suspect]
     Indication: CONTRACEPTION
     Dosage: SUBDERMAL
     Route: 059
     Dates: start: 20080818, end: 20090402

REACTIONS (10)
  - AMENORRHOEA [None]
  - COMPLICATION OF DEVICE REMOVAL [None]
  - CONFUSIONAL STATE [None]
  - FIBROSIS [None]
  - HEADACHE [None]
  - IMPLANT SITE REACTION [None]
  - MUSCLE TWITCHING [None]
  - PARAESTHESIA [None]
  - PARTIAL SEIZURES [None]
  - TREMOR [None]
